FAERS Safety Report 5636914-4 (Version None)
Quarter: 2008Q1

REPORT INFORMATION
  Report Type: 
  Country: None (occurrence: None)
  Receive Date: 20080220
  Receipt Date: 20080220
  Transmission Date: 20080703
  Serious: No
  Sender: FDA-Public Use
  Company Number: None

PATIENT
  Age: 49 Year
  Sex: Female
  Weight: 68.0396 kg

DRUGS (1)
  1. ZICAM MATRIXX [Suspect]
     Indication: NASAL CONGESTION
     Dosage: RECOMMENDED DOSE 2X/DAY NASAL
     Route: 045
     Dates: start: 20080203, end: 20080219

REACTIONS (3)
  - AGEUSIA [None]
  - ANOSMIA [None]
  - BURNING SENSATION [None]
